FAERS Safety Report 6007017-4 (Version None)
Quarter: 2008Q4

REPORT INFORMATION
  Report Type: 
  Country: None (occurrence: None)
  Receive Date: 20081217
  Receipt Date: 20071220
  Transmission Date: 20090506
  Serious: No
  Sender: FDA-Public Use
  Company Number: US-ASTRAZENECA-2007UW28747

PATIENT
  Age: 76 Year
  Sex: Female
  Weight: 85.3 kg

DRUGS (8)
  1. CRESTOR [Suspect]
     Route: 048
     Dates: start: 20071214
  2. ASPIRIN [Concomitant]
  3. METOPROLOL SUCCINATE EXTENDED RELEASE [Concomitant]
  4. ASCORBIC ACID [Concomitant]
  5. FISH LIVER OIL [Concomitant]
  6. GLUCOSAMINE+COSTOCHONDROITIN [Concomitant]
  7. LOVASTATIN [Concomitant]
     Indication: BLOOD TRIGLYCERIDES INCREASED
  8. LOVASTATIN [Concomitant]
     Indication: LOW DENSITY LIPOPROTEIN INCREASED

REACTIONS (4)
  - FEELING ABNORMAL [None]
  - LYMPHADENOPATHY [None]
  - MYALGIA [None]
  - RESPIRATORY RATE INCREASED [None]
